FAERS Safety Report 6791025-X (Version None)
Quarter: 2010Q2

REPORT INFORMATION
  Report Type: 
  Country: None (occurrence: None)
  Receive Date: 20100623
  Receipt Date: 20100623
  Transmission Date: 20101027
  Serious: Yes (Other)
  Sender: FDA-Public Use
  Company Number: None

PATIENT
  Age: 61 Year
  Weight: 99.7913 kg

DRUGS (2)
  1. LUPRON [Suspect]
     Indication: PROSTATE CANCER
     Dosage: 1 MONTH ONCE
     Dates: start: 20030301, end: 20030401
  2. LUPRON [Suspect]
     Indication: PROSTATE CANCER
     Dosage: 3 MONTHS ONCE
     Dates: start: 20030401, end: 20030701

REACTIONS (3)
  - BACK PAIN [None]
  - CARDIAC DISORDER [None]
  - THYROID DISORDER [None]
